FAERS Safety Report 6544132-0 (Version None)
Quarter: 2010Q1

REPORT INFORMATION
  Report Type: 
  Country: None (occurrence: None)
  Receive Date: 20100120
  Receipt Date: 20100115
  Transmission Date: 20100710
  Serious: Yes (Life-Threatening, Hospitalization, Other)
  Sender: FDA-Public Use
  Company Number: GB-AMGEN-UK229959

PATIENT
  Age: 39 Year
  Sex: Male

DRUGS (7)
  1. NEUPOGEN [Suspect]
     Indication: DRUG USE FOR UNKNOWN INDICATION
     Route: 058
     Dates: start: 20070314
  2. CYCLOPHOSPHAMIDE [Suspect]
     Route: 041
     Dates: start: 20070308
  3. RITUXIMAB [Suspect]
     Route: 042
     Dates: start: 20070308, end: 20070424
  4. METHOTREXATE [Suspect]
     Route: 037
     Dates: start: 20070308
  5. PREDNISOLONE [Concomitant]
     Route: 048
     Dates: start: 20070308
  6. RANITIDINE [Concomitant]
     Route: 048
     Dates: start: 20070308
  7. VINCRISTINE [Concomitant]
     Route: 040
     Dates: start: 20070308

REACTIONS (2)
  - INTERSTITIAL LUNG DISEASE [None]
  - PULMONARY FIBROSIS [None]
